FAERS Safety Report 14107706 (Version 1)
Quarter: 2017Q4

REPORT INFORMATION
  Report Type: Spontaneous
  Country: GB (occurrence: GB)
  Receive Date: 20171019
  Receipt Date: 20171019
  Transmission Date: 20180321
  Serious: Yes (Disabling, Congenital Anomaly, Other)
  Sender: FDA-Public Use
  Company Number: GB-TEVA-816313ACC

PATIENT
  Age: 13 Year
  Sex: Female

DRUGS (1)
  1. SODIUM VALPROATE [Suspect]
     Active Substance: VALPROATE SODIUM
     Indication: EPILEPSY
     Dosage: 100 MILLIGRAM DAILY;
     Route: 064
     Dates: start: 19931001, end: 20060930

REACTIONS (12)
  - Communication disorder [Unknown]
  - Learning disorder [Not Recovered/Not Resolved]
  - Suicidal ideation [Unknown]
  - Attention deficit/hyperactivity disorder [Unknown]
  - Fine motor skill dysfunction [Unknown]
  - Self esteem decreased [Unknown]
  - Disturbance in attention [Unknown]
  - Gastrooesophageal reflux disease [Unknown]
  - Anger [Unknown]
  - Bone pain [Unknown]
  - Decreased eye contact [Unknown]
  - Sleep disorder [Unknown]
